FAERS Safety Report 7166485-5 (Version None)
Quarter: 2010Q4

REPORT INFORMATION
  Report Type: 
  Country: None (occurrence: None)
  Receive Date: 20101216
  Receipt Date: 20101209
  Transmission Date: 20110411
  Serious: Yes (Death)
  Sender: FDA-Public Use
  Company Number: AR-BRISTOL-MYERS SQUIBB COMPANY-15436561

PATIENT

DRUGS (1)
  1. REYATAZ [Suspect]

REACTIONS (1)
  - NEOPLASM MALIGNANT [None]
